FAERS Safety Report 7141929-3 (Version None)
Quarter: 2010Q4

REPORT INFORMATION
  Report Type: 
  Country: None (occurrence: None)
  Receive Date: 20101203
  Receipt Date: 20101203
  Transmission Date: 20110411
  Serious: No
  Sender: FDA-Public Use
  Company Number: None

PATIENT
  Age: 72 Year
  Sex: Male
  Weight: 93.8946 kg

DRUGS (5)
  1. KEPPRA [Suspect]
     Dosage: 750 MG BID PO
     Route: 048
  2. CARDIZEM [Concomitant]
  3. COUMADIN [Concomitant]
  4. LISINOPRIL [Concomitant]
  5. TRAZODONE HCL [Concomitant]

REACTIONS (3)
  - COGNITIVE DISORDER [None]
  - FEELING ABNORMAL [None]
  - SEDATION [None]
